FAERS Safety Report 5530749-9 (Version None)
Quarter: 2007Q4

REPORT INFORMATION
  Report Type: 
  Country: None (occurrence: None)
  Receive Date: 20071130
  Receipt Date: 20071119
  Transmission Date: 20080405
  Serious: Yes (Hospitalization)
  Sender: FDA-Public Use
  Company Number: US-ELI_LILLY_AND_COMPANY-US200710002133

PATIENT
  Sex: Female
  Weight: 52.608 kg

DRUGS (7)
  1. ALIMTA [Suspect]
     Indication: NON-SMALL CELL LUNG CANCER METASTATIC
     Dosage: 785 MG, UNK
     Route: 042
     Dates: start: 20070829, end: 20070101
  2. ZOMETA [Concomitant]
     Indication: METASTASES TO BONE
     Dosage: UNK, MONTHLY (1/M)
     Route: 042
     Dates: start: 20061030
  3. DIFLUCAN [Concomitant]
     Indication: CANDIDIASIS
     Dates: start: 20070823, end: 20070830
  4. DEXAMETHASONE [Concomitant]
     Dosage: 4 MG, 2/D
     Route: 048
  5. VITAMIN B-12 [Concomitant]
     Dosage: 1000 UG, UNK
     Route: 058
     Dates: start: 20070823, end: 20070101
  6. FOLIC ACID [Concomitant]
     Dosage: 1 MG, DAILY (1/D)
     Route: 048
     Dates: start: 20070823, end: 20070917
  7. DURAGESIC-100 [Concomitant]
     Dosage: 25 UG, 3/D
     Dates: start: 20070901

REACTIONS (1)
  - STEVENS-JOHNSON SYNDROME [None]
